FAERS Safety Report 20049508 (Version 4)
Quarter: 2021Q4

REPORT INFORMATION
  Report Type: Spontaneous
  Country: JP (occurrence: JP)
  Receive Date: 20211109
  Receipt Date: 20211215
  Transmission Date: 20220303
  Serious: No
  Sender: FDA-Public Use
  Company Number: JP-GILEAD-2021-0555300

PATIENT
  Age: 45 Year
  Sex: Female
  Weight: 70.6 kg

DRUGS (7)
  1. VEKLURY [Suspect]
     Active Substance: REMDESIVIR
     Indication: COVID-19
     Dosage: 200 MG, QD
     Route: 041
     Dates: start: 20210531, end: 20210531
  2. VEKLURY [Suspect]
     Active Substance: REMDESIVIR
     Dosage: 100 MG, QD
     Route: 041
     Dates: start: 20210601, end: 20210604
  3. LEVOFLOXACIN [Suspect]
     Active Substance: LEVOFLOXACIN
     Indication: Product used for unknown indication
     Dosage: UNK
     Route: 065
  4. DECADRON [Concomitant]
     Active Substance: DEXAMETHASONE
     Indication: COVID-19
     Dosage: 6 MG, QD
     Route: 048
     Dates: start: 20210531, end: 20210609
  5. NEXIUM [ESOMEPRAZOLE MAGNESIUM TRIHYDRATE] [Concomitant]
     Indication: COVID-19
     Dosage: 20 MG, QD
     Route: 048
     Dates: start: 20210531, end: 20210606
  6. NEXIUM [ESOMEPRAZOLE MAGNESIUM TRIHYDRATE] [Concomitant]
     Indication: Prophylaxis against gastrointestinal ulcer
  7. ASVERIN [RIBAVIRIN] [Concomitant]
     Indication: COVID-19
     Dosage: 20 MG, PRN
     Route: 048
     Dates: start: 20210601, end: 20210601

REACTIONS (4)
  - Bradycardia [Recovered/Resolved]
  - Dermatitis contact [Unknown]
  - Bacterial infection [Unknown]
  - Hepatic function abnormal [Unknown]

NARRATIVE: CASE EVENT DATE: 20210601
